FAERS Safety Report 14215813 (Version 3)
Quarter: 2018Q1

REPORT INFORMATION
  Report Type: Report from Study
  Country: DE (occurrence: DE)
  Receive Date: 20171122
  Receipt Date: 20180326
  Transmission Date: 20180508
  Serious: Yes (Death, Hospitalization, Other)
  Sender: FDA-Public Use
  Company Number: DE-ROCHE-1178476

PATIENT
  Age: 71 Year
  Sex: Female
  Weight: 60 kg

DRUGS (6)
  1. XELODA [Suspect]
     Active Substance: CAPECITABINE
     Indication: OESOPHAGEAL CANCER METASTATIC
     Route: 048
     Dates: start: 20121114, end: 20121204
  2. CISPLATIN. [Suspect]
     Active Substance: CISPLATIN
     Route: 042
     Dates: start: 20121205, end: 20121225
  3. 5-FU [Suspect]
     Active Substance: FLUOROURACIL
     Indication: OESOPHAGEAL CANCER METASTATIC
     Dosage: LAST DOSE PRIOR TO SAE ON 05/DEC/2012
     Route: 042
     Dates: start: 20121205, end: 20121225
  4. CISPLATIN. [Suspect]
     Active Substance: CISPLATIN
     Indication: OESOPHAGEAL CANCER METASTATIC
     Dosage: LAST DOSE PRIOR TO SAE ON 05/DEC/2012
     Route: 042
     Dates: start: 20121114
  5. TRASTUZUMAB. [Suspect]
     Active Substance: TRASTUZUMAB
     Dosage: SECOND CYCLE, LAST DOSE PRIOR TO SAE ON 05/DEC/2012
     Route: 042
     Dates: start: 20121205, end: 20121225
  6. TRASTUZUMAB. [Suspect]
     Active Substance: TRASTUZUMAB
     Indication: METASTATIC GASTRIC CANCER
     Route: 042
     Dates: start: 20121114

REACTIONS (9)
  - Hypovolaemia [Recovered/Resolved]
  - Dyspnoea [Fatal]
  - Nausea [Recovered/Resolved]
  - General physical health deterioration [Fatal]
  - Arrhythmia [Recovered/Resolved]
  - Upper gastrointestinal haemorrhage [Recovered/Resolved]
  - Circulatory collapse [Recovered/Resolved]
  - Vomiting [Recovered/Resolved]
  - Asthenia [Recovered/Resolved]

NARRATIVE: CASE EVENT DATE: 20121114
